FAERS Safety Report 6327912-6 (Version None)
Quarter: 2009Q3

REPORT INFORMATION
  Report Type: 
  Country: None (occurrence: None)
  Receive Date: 20090824
  Receipt Date: 20090813
  Transmission Date: 20100115
  Serious: Yes (Death)
  Sender: FDA-Public Use
  Company Number: GXKR2009GB08740

PATIENT
  Sex: Female

DRUGS (10)
  1. AMISULPRIDE (NGX) (AMISULPRIDE) UNKNOWN [Suspect]
     Indication: ABNORMAL BEHAVIOUR
     Dosage: 600 MG/DAY, ORAL
     Route: 048
     Dates: start: 20060101
  2. METFORMIN HCL [Suspect]
     Indication: DIABETES MELLITUS
     Dosage: 1000 MG, BID, ORAL
     Route: 048
     Dates: start: 20060101
  3. DIAZEPAM [Concomitant]
  4. HYDROCORTONE [Concomitant]
  5. INSULIN (INSULIN) [Concomitant]
  6. MOVICOL (MACROGOL, POTASSIUM CHLORIDE, SODIUM BICARBONATE, SODIUM CHLO [Concomitant]
  7. QUETIAPINE FUMARATE [Concomitant]
  8. SENNA (SENNA, SENNA ALEXANDRINA) [Concomitant]
  9. TRAZODONE HCL [Concomitant]
  10. ZOPICLONE (ZOPICLONE) [Concomitant]

REACTIONS (4)
  - DRUG LEVEL INCREASED [None]
  - DRUG TOXICITY [None]
  - MULTIPLE DRUG OVERDOSE [None]
  - RENAL IMPAIRMENT [None]
